FAERS Safety Report 8495637-7 (Version None)
Quarter: 2012Q3

REPORT INFORMATION
  Report Type: 
  Country: None (occurrence: None)
  Receive Date: 20120709
  Receipt Date: 20120629
  Transmission Date: 20120928
  Serious: Yes (Hospitalization)
  Sender: FDA-Public Use
  Company Number: US-ROCHE-1083101

PATIENT
  Sex: Male

DRUGS (12)
  1. CYCLOPHOSPHAMIDE [Suspect]
     Indication: NON-HODGKIN'S LYMPHOMA
     Dosage: 1000 MG/M2
     Dates: start: 20120518, end: 20120701
  2. ACETAMINOPHEN [Concomitant]
     Route: 048
  3. SENNA-MINT WAF [Concomitant]
     Dosage: BEDTIME NIGHTLY
     Route: 048
  4. MABTHERA [Suspect]
     Indication: NON-HODGKIN'S LYMPHOMA
     Dosage: 375 MG/M2
     Dates: start: 20120518, end: 20120701
  5. VINCRISTINE SULFATE [Suspect]
     Indication: NON-HODGKIN'S LYMPHOMA
     Dosage: 1.4 MG/M2
     Dates: start: 20120518, end: 20120701
  6. PEGFILGRASTIM [Concomitant]
     Indication: NON-HODGKIN'S LYMPHOMA
     Route: 058
     Dates: start: 20120521
  7. PANTOPRAZOLE [Concomitant]
     Route: 048
  8. ACYCLOVIR [Concomitant]
     Route: 048
  9. DOXORUBICIN HYDROCHLORIDE [Suspect]
     Indication: NON-HODGKIN'S LYMPHOMA
     Dosage: 50 MG/M2
     Dates: start: 20120518, end: 20120701
  10. PREDNISONE [Suspect]
     Indication: NON-HODGKIN'S LYMPHOMA
     Dates: end: 20120701
  11. DEXAMETHASONE [Concomitant]
     Dosage: ONCE
     Route: 048
  12. FLUCONAZOLE [Concomitant]
     Route: 048

REACTIONS (2)
  - FEBRILE NEUTROPENIA [None]
  - PROCTALGIA [None]
